FAERS Safety Report 18001782 (Version 4)
Quarter: 2021Q3

REPORT INFORMATION
  Report Type: Spontaneous
  Country: US (occurrence: US)
  Receive Date: 20200709
  Receipt Date: 20210817
  Transmission Date: 20211014
  Serious: Yes (Other)
  Sender: FDA-Public Use
  Company Number: US-GILEAD-2020-0477530

PATIENT
  Age: 50 Year
  Sex: Female

DRUGS (4)
  1. ATRIPLA [Suspect]
     Active Substance: EFAVIRENZ\EMTRICITABINE\TENOFOVIR DISOPROXIL FUMARATE
     Dosage: UNK
     Route: 065
     Dates: start: 2007, end: 2019
  2. ATRIPLA [Suspect]
     Active Substance: EFAVIRENZ\EMTRICITABINE\TENOFOVIR DISOPROXIL FUMARATE
     Indication: HIV INFECTION
     Dosage: UNK
     Route: 048
     Dates: start: 2007
  3. ATRIPLA [Suspect]
     Active Substance: EFAVIRENZ\EMTRICITABINE\TENOFOVIR DISOPROXIL FUMARATE
     Dosage: UNK
     Route: 065
     Dates: start: 2006, end: 2019
  4. VIREAD [Suspect]
     Active Substance: TENOFOVIR DISOPROXIL FUMARATE
     Indication: HIV INFECTION
     Dosage: UNK
     Route: 048
     Dates: start: 200704, end: 202002

REACTIONS (7)
  - Osteoporosis [Not Recovered/Not Resolved]
  - Bone loss [Unknown]
  - Bone density decreased [Not Recovered/Not Resolved]
  - Tooth loss [Not Recovered/Not Resolved]
  - Osteonecrosis [Unknown]
  - Multiple fractures [Unknown]
  - Renal injury [Unknown]

NARRATIVE: CASE EVENT DATE: 201201
